FAERS Safety Report 20170204 (Version 6)
Quarter: 2022Q2

REPORT INFORMATION
  Report Type: Spontaneous
  Country: JP (occurrence: JP)
  Receive Date: 20211210
  Receipt Date: 20220411
  Transmission Date: 20220721
  Serious: Yes (Death, Life-Threatening, Other)
  Sender: FDA-Public Use
  Company Number: JP-ONO-2021JP031000

PATIENT
  Age: 41 Year
  Sex: Male
  Weight: 63.1 kg

DRUGS (9)
  1. OPDIVO [Suspect]
     Active Substance: NIVOLUMAB
     Indication: Non-small cell lung cancer recurrent
     Dosage: 360 MILLIGRAM
     Route: 041
     Dates: start: 20210928, end: 20210928
  2. YERVOY [Suspect]
     Active Substance: IPILIMUMAB
     Indication: Non-small cell lung cancer recurrent
     Dosage: 60.3 MILLIGRAM
     Route: 041
     Dates: start: 20210928, end: 20210928
  3. CARBOPLATIN [Suspect]
     Active Substance: CARBOPLATIN
     Indication: Non-small cell lung cancer recurrent
     Dosage: 727 MILLIGRAM
     Route: 041
     Dates: start: 20210928, end: 20210928
  4. PEMETREXED DISODIUM [Suspect]
     Active Substance: PEMETREXED DISODIUM
     Indication: Non-small cell lung cancer recurrent
     Dosage: 853.5 MILLIGRAM
     Route: 041
     Dates: start: 20210928, end: 20210928
  5. PREGABALIN [Concomitant]
     Active Substance: PREGABALIN
     Indication: Non-small cell lung cancer recurrent
     Dosage: 150 MILLIGRAM, BID
     Route: 048
  6. PANVITAN [VITAMINS NOS] [Concomitant]
     Indication: Prophylaxis
     Dosage: 1 GRAM, QD
     Route: 048
     Dates: end: 20211006
  7. AMITIZA [Concomitant]
     Active Substance: LUBIPROSTONE
     Indication: Constipation
     Dosage: 24 MICROGRAM, BID
     Route: 048
     Dates: end: 20211007
  8. OXYCODONE HYDROCHLORIDE [Concomitant]
     Active Substance: OXYCODONE HYDROCHLORIDE
     Indication: Non-small cell lung cancer recurrent
     Dosage: 40 MILLIGRAM, BID
     Route: 048
     Dates: end: 20211007
  9. OXYCODONE HYDROCHLORIDE [Concomitant]
     Active Substance: OXYCODONE HYDROCHLORIDE
     Dosage: 10 MILLIGRAM, BID
     Route: 048
     Dates: end: 20211007

REACTIONS (2)
  - Malignant neoplasm progression [Fatal]
  - Myocarditis [Recovering/Resolving]

NARRATIVE: CASE EVENT DATE: 20211007
